FAERS Safety Report 11517214 (Version 1)
Quarter: 2015Q3

REPORT INFORMATION
  Report Type: Spontaneous
  Country: US (occurrence: None)
  Receive Date: 20150916
  Receipt Date: 20150916
  Transmission Date: 20151125
  Serious: Yes (Hospitalization)
  Sender: FDA-Public Use
  Company Number: None

PATIENT
  Age: 70 Year
  Sex: Male
  Weight: 101.5 kg

DRUGS (2)
  1. TIZANIDINE. [Suspect]
     Active Substance: TIZANIDINE
     Indication: MUSCLE RELAXANT THERAPY
     Route: 048
     Dates: start: 20150205, end: 20150906
  2. PROPRANOLOL [Suspect]
     Active Substance: PROPRANOLOL\PROPRANOLOL HYDROCHLORIDE
     Indication: HYPERTENSION
     Route: 048
     Dates: start: 20150725, end: 20150906

REACTIONS (2)
  - Orthostatic hypotension [None]
  - Drug interaction [None]

NARRATIVE: CASE EVENT DATE: 20150906
